FAERS Safety Report 9461689 (Version 1)
Quarter: 2013Q3

REPORT INFORMATION
  Report Type: Spontaneous
  Country: US (occurrence: US)
  Receive Date: 20130816
  Receipt Date: 20130816
  Transmission Date: 20140515
  Serious: No
  Sender: FDA-Public Use
  Company Number: US-JNJFOC-20130718339

PATIENT
  Age: 15 Year
  Sex: Male

DRUGS (1)
  1. INVEGA [Suspect]
     Indication: AUTISM
     Route: 048

REACTIONS (2)
  - Gynaecomastia [Not Recovered/Not Resolved]
  - Off label use [Unknown]
